FAERS Safety Report 8419821-3 (Version None)
Quarter: 2012Q2

REPORT INFORMATION
  Report Type: 
  Country: None (occurrence: None)
  Receive Date: 20120607
  Receipt Date: 20120531
  Transmission Date: 20120825
  Serious: Yes (Disabling, Other)
  Sender: FDA-Public Use
  Company Number: PHHY2012TR047877

PATIENT
  Age: 41 Year
  Sex: Female

DRUGS (3)
  1. TACROLIMUS [Suspect]
     Indication: RENAL TRANSPLANT
  2. MYCOPHENOLATE MOFETIL [Suspect]
     Indication: RENAL TRANSPLANT
  3. CORTICOSTEROIDS [Suspect]
     Indication: RENAL TRANSPLANT

REACTIONS (1)
  - NEUROPATHY PERIPHERAL [None]
